FAERS Safety Report 5593282-4 (Version None)
Quarter: 2008Q1

REPORT INFORMATION
  Report Type: 
  Country: None (occurrence: None)
  Receive Date: 20080116
  Receipt Date: 20080111
  Transmission Date: 20080703
  Serious: Yes (Death, Hospitalization)
  Sender: FDA-Public Use
  Company Number: A0570085A

PATIENT
  Age: 73 Year
  Sex: Female
  Weight: 59 kg

DRUGS (1)
  1. GW572016 [Suspect]
     Indication: BREAST CANCER METASTATIC
     Dosage: 59000MG CUMULATIVE DOSE
     Route: 048
     Dates: start: 20050110

REACTIONS (18)
  - ABDOMINAL DISTENSION [None]
  - ABDOMINAL PAIN [None]
  - ASCITES [None]
  - DIARRHOEA [None]
  - HEPATIC CIRRHOSIS [None]
  - HEPATIC ENCEPHALOPATHY [None]
  - HEPATIC FAILURE [None]
  - HEPATORENAL SYNDROME [None]
  - JAUNDICE [None]
  - NAUSEA [None]
  - OLIGURIA [None]
  - OXYGEN SUPPLEMENTATION [None]
  - PERITONITIS BACTERIAL [None]
  - PORTAL HYPERTENSION [None]
  - TREATMENT FAILURE [None]
  - URINARY TRACT INFECTION [None]
  - VOMITING [None]
  - WHITE BLOOD CELLS URINE [None]
